FAERS Safety Report 5131596-2 (Version None)
Quarter: 2006Q4

REPORT INFORMATION
  Report Type: 
  Country: None (occurrence: None)
  Receive Date: 20061020
  Receipt Date: 20040413
  Transmission Date: 20070319
  Serious: Yes (Life-Threatening, Hospitalization)
  Sender: FDA-Public Use
  Company Number: FR-ABBOTT-04P-056-0257419-00

PATIENT
  Age: 81 Year
  Sex: Female

DRUGS (1)
  1. DEPAKENE [Suspect]
     Indication: EPILEPSY
     Route: 048
     Dates: start: 19970701, end: 20030601

REACTIONS (10)
  - AGGRESSION [None]
  - BEDRIDDEN [None]
  - BONE PAIN [None]
  - CEREBRAL ATROPHY [None]
  - DECUBITUS ULCER [None]
  - DEMENTIA [None]
  - INFLAMMATION [None]
  - PARKINSONISM [None]
  - SOCIAL PROBLEM [None]
  - WEIGHT DECREASED [None]
